FAERS Safety Report 21251137 (Version 1)
Quarter: 2022Q3

REPORT INFORMATION
  Report Type: Other
  Country: None (occurrence: US)
  Receive Date: 20220824
  Receipt Date: 20220824
  Transmission Date: 20221027
  Serious: Yes (Hospitalization)
  Sender: FDA-Public Use
  Company Number: US-OrBion Pharmaceuticals Private Limited-2132192

PATIENT
  Age: 17 Year
  Sex: Female
  Weight: 103 kg

DRUGS (4)
  1. AMLODIPINE BESYLATE [Suspect]
     Active Substance: AMLODIPINE BESYLATE
     Route: 065
  2. ACETAMINOPHEN [Concomitant]
     Active Substance: ACETAMINOPHEN
     Route: 065
  3. IBUPROFEN [Suspect]
     Active Substance: IBUPROFEN
     Route: 065
  4. AMOXICILLIN [Suspect]
     Active Substance: AMOXICILLIN
     Route: 065

REACTIONS (11)
  - Toxicity to various agents [Recovered/Resolved]
  - Circulatory collapse [Recovered/Resolved]
  - Intentional overdose [Recovered/Resolved]
  - Seizure [Recovered/Resolved]
  - Unresponsive to stimuli [Recovered/Resolved]
  - Skin laceration [Recovered/Resolved]
  - Acute kidney injury [Recovered/Resolved]
  - Prothrombin time prolonged [Recovered/Resolved]
  - Activated partial thromboplastin time prolonged [Recovered/Resolved]
  - International normalised ratio increased [Recovered/Resolved]
  - Blood glucose increased [Recovered/Resolved]
